FAERS Safety Report 23652880 (Version 2)
Quarter: 2024Q2

REPORT INFORMATION
  Report Type: Spontaneous
  Country: GB (occurrence: None)
  Receive Date: 20240320
  Receipt Date: 20240425
  Transmission Date: 20240715
  Serious: Yes (Death, Other)
  Sender: FDA-Public Use
  Company Number: 2024A067367

PATIENT

DRUGS (4)
  1. QUETIAPINE [Suspect]
     Active Substance: QUETIAPINE
     Indication: Bipolar I disorder
  2. LITHIUM [Suspect]
     Active Substance: LITHIUM
     Indication: Bipolar I disorder
  3. CYCLIZINE [Concomitant]
     Active Substance: CYCLIZINE
     Indication: Morning sickness
  4. FOLIC ACID [Concomitant]
     Active Substance: FOLIC ACID
     Indication: Vitamin supplementation

REACTIONS (2)
  - Maternal exposure during pregnancy [Unknown]
  - Foetal death [Fatal]
